FAERS Safety Report 21141132 (Version 1)
Quarter: 2022Q3

REPORT INFORMATION
  Report Type: Spontaneous
  Country: US (occurrence: US)
  Receive Date: 20220728
  Receipt Date: 20220728
  Transmission Date: 20221026
  Serious: Yes (Other)
  Sender: FDA-Public Use
  Company Number: US-LUPIN PHARMACEUTICALS INC.-2022-09831

PATIENT
  Age: 51 Year
  Sex: Female

DRUGS (6)
  1. LAMOTRIGINE [Suspect]
     Active Substance: LAMOTRIGINE
     Indication: SUNA syndrome
     Dosage: UNK
     Route: 065
  2. GABAPENTIN [Suspect]
     Active Substance: GABAPENTIN
     Indication: SUNA syndrome
     Dosage: UNK
     Route: 065
  3. BOTOX [Suspect]
     Active Substance: ONABOTULINUMTOXINA
     Indication: SUNA syndrome
     Dosage: UNK
     Route: 065
  4. INDOMETHACIN [Suspect]
     Active Substance: INDOMETHACIN
     Indication: SUNA syndrome
     Dosage: UNK
     Route: 065
  5. ERENUMAB [Concomitant]
     Active Substance: ERENUMAB
     Indication: SUNA syndrome
     Dosage: 70 MG (EVERY 30 DAYS)
     Route: 065
  6. ERENUMAB [Concomitant]
     Active Substance: ERENUMAB
     Dosage: 140 MG (DOSE INCREASED AFTER 3 MONTHS)
     Route: 065

REACTIONS (2)
  - Drug ineffective for unapproved indication [Unknown]
  - Off label use [Unknown]
